FAERS Safety Report 23138199 (Version 2)
Quarter: 2023Q4

REPORT INFORMATION
  Report Type: Spontaneous
  Country: US (occurrence: US)
  Receive Date: 20231102
  Receipt Date: 20231212
  Transmission Date: 20240110
  Serious: No
  Sender: FDA-Public Use
  Company Number: US-PFIZER INC-202300325085

PATIENT
  Age: 69 Year
  Sex: Male
  Weight: 79.38 kg

DRUGS (7)
  1. GENOTROPIN [Suspect]
     Active Substance: SOMATROPIN
     Indication: Hormone therapy
     Dosage: ADMINISTERED IN STOMACH AND THIGHS
  2. LANSOPRAZOLE [Concomitant]
     Active Substance: LANSOPRAZOLE
     Indication: Gastritis
     Dosage: 300 MG, 2X/DAY (30MG CAPSULE TWICE A DAY BY MOUTH)
     Route: 048
  3. CLARITHROMYCIN [Concomitant]
     Active Substance: CLARITHROMYCIN
     Indication: Gastritis
     Dosage: 500 MG, 2X/DAY (500MG CAPSULE TWICE A DAY BY MOUTH)
     Route: 048
  4. CLARITHROMYCIN [Concomitant]
     Active Substance: CLARITHROMYCIN
     Indication: Infection
  5. AMOXICILLIN [Concomitant]
     Active Substance: AMOXICILLIN
     Indication: Helicobacter infection
     Dosage: 500 MG, 2X/DAY (500MG TABLETS; 2 TABLETS TWICE A DAY BY MOUTH)
     Route: 048
  6. TESTOSTERONE [Concomitant]
     Active Substance: TESTOSTERONE
     Indication: Hormone therapy
     Dosage: 10 MG, 1X/DAY (10MG, 4 PUMPS, ONCE A DAY GEL PUT ON THIGHS AND RUB IN)
     Route: 061
  7. HYDROCORTISONE [Concomitant]
     Active Substance: HYDROCORTISONE
     Indication: Hormone therapy
     Dosage: 5 MG, 2X/DAY (5MG TABLET TWICE A DAY BY MOUTH)
     Route: 048

REACTIONS (4)
  - Device mechanical issue [Unknown]
  - Device delivery system issue [Unknown]
  - Hiatus hernia [Not Recovered/Not Resolved]
  - Arthritis [Unknown]

NARRATIVE: CASE EVENT DATE: 20230801
